FAERS Safety Report 4454272-8 (Version None)
Quarter: 2004Q3

REPORT INFORMATION
  Report Type: 
  Country: None (occurrence: None)
  Receive Date: 20040826
  Receipt Date: 20040621
  Transmission Date: 20050211
  Serious: No
  Sender: FDA-Public Use
  Company Number: WAES 0406USA01977

PATIENT
  Sex: Male

DRUGS (1)
  1. ZETIA [Suspect]
     Dosage: PO
     Route: 048
     Dates: start: 20040201

REACTIONS (5)
  - BACK DISORDER [None]
  - INSOMNIA [None]
  - POLLAKIURIA [None]
  - TREMOR [None]
  - URINE ODOUR ABNORMAL [None]
